FAERS Safety Report 7158198-0 (Version None)
Quarter: 2010Q4

REPORT INFORMATION
  Report Type: 
  Country: None (occurrence: None)
  Receive Date: 20101214
  Receipt Date: 20100322
  Transmission Date: 20110411
  Serious: No
  Sender: FDA-Public Use
  Company Number: US-ASTRAZENECA-2010SE12478

PATIENT
  Age: 53 Year
  Sex: Female
  Weight: 59.9 kg

DRUGS (1)
  1. CRESTOR [Suspect]
     Route: 048
     Dates: start: 20091103

REACTIONS (1)
  - SENSITIVITY OF TEETH [None]
